FAERS Safety Report 19646989 (Version 6)
Quarter: 2022Q3

REPORT INFORMATION
  Report Type: Other
  Country: CN (occurrence: None)
  Receive Date: 20210802
  Receipt Date: 20220919
  Transmission Date: 20221027
  Serious: Yes (Death, Other)
  Sender: FDA-Public Use
  Company Number: CN-ROCHE-1769881

PATIENT
  Age: 64 Year
  Sex: Female
  Weight: 48 kg

DRUGS (2)
  1. AVASTIN [Suspect]
     Active Substance: BEVACIZUMAB
     Indication: Non-small cell lung cancer
     Route: 041
     Dates: start: 20160208, end: 20210505
  2. AVASTIN [Suspect]
     Active Substance: BEVACIZUMAB
     Route: 041

REACTIONS (20)
  - Abdominal discomfort [Unknown]
  - Vomiting [Recovering/Resolving]
  - Chest discomfort [Recovering/Resolving]
  - Tongue ulceration [Recovering/Resolving]
  - Mouth ulceration [Recovering/Resolving]
  - Eye pruritus [Recovering/Resolving]
  - Nasopharyngitis [Unknown]
  - Oropharyngeal pain [Unknown]
  - White blood cell count decreased [Recovering/Resolving]
  - Blood test abnormal [Unknown]
  - Depressed mood [Recovering/Resolving]
  - Diarrhoea [Unknown]
  - Pulmonary mass [Unknown]
  - Road traffic accident [Unknown]
  - Contusion [Unknown]
  - Fall [Unknown]
  - Injury [Unknown]
  - Foot fracture [Unknown]
  - Breath odour [Recovering/Resolving]
  - Death [Fatal]

NARRATIVE: CASE EVENT DATE: 20160524
